FAERS Safety Report 24759207 (Version 1)
Quarter: 2024Q4

REPORT INFORMATION
  Report Type: Spontaneous
  Country: GB (occurrence: GB)
  Receive Date: 20241220
  Receipt Date: 20241220
  Transmission Date: 20250115
  Serious: Yes (Other)
  Sender: RANBAXY
  Company Number: GB-SUN PHARMACEUTICAL INDUSTRIES LTD-2024RR-485032

PATIENT
  Age: 53 Year
  Sex: Female
  Weight: 72 kg

DRUGS (6)
  1. ESOMEPRAZOLE [Suspect]
     Active Substance: ESOMEPRAZOLE
     Indication: Gastrooesophageal reflux disease
     Dosage: 20MG MORNING, RISING TO 40MG ON 19 JULY 2024
     Route: 065
     Dates: start: 20240608, end: 20240718
  2. ESOMEPRAZOLE [Suspect]
     Active Substance: ESOMEPRAZOLE
     Dosage: 40 MILLIGRAM, DAILY
     Route: 065
     Dates: start: 20240719, end: 20240725
  3. CETIRIZINE [Concomitant]
     Active Substance: CETIRIZINE HYDROCHLORIDE
     Indication: Rhinitis
     Dosage: UNK
     Route: 065
  4. MOMETASONE [Concomitant]
     Active Substance: MOMETASONE
     Indication: Rhinitis
     Dosage: UNK
     Route: 065
  5. IBUPROFEN [Concomitant]
     Active Substance: IBUPROFEN
     Indication: Headache
     Dosage: 2 TABLETS PER DAY
     Route: 065
     Dates: start: 20240715, end: 20240720
  6. ACETAMINOPHEN [Concomitant]
     Active Substance: ACETAMINOPHEN
     Indication: Headache
     Dosage: 2 TABLETS PER DAY
     Route: 065
     Dates: start: 20240715, end: 20240720

REACTIONS (2)
  - Oedema peripheral [Recovered/Resolved]
  - Hypertension [Recovered/Resolved]

NARRATIVE: CASE EVENT DATE: 20240701
